FAERS Safety Report 9051824 (Version 3)
Quarter: 2015Q4

REPORT INFORMATION
  Report Type: Spontaneous
  Country: US (occurrence: US)
  Receive Date: 20130207
  Receipt Date: 20151202
  Transmission Date: 20160305
  Serious: Yes (Hospitalization)
  Sender: FDA-Public Use
  Company Number: US-BAYER-2013-014415

PATIENT
  Age: 36 Year
  Sex: Female
  Weight: 95.24 kg

DRUGS (13)
  1. ZEGERID [Concomitant]
     Active Substance: OMEPRAZOLE\SODIUM BICARBONATE
     Dosage: UNK
     Dates: start: 20090427
  2. STATIN [Concomitant]
     Active Substance: UNSPECIFIED INGREDIENT
  3. HYDROCHLOROTHIAZIDE AND LISINOPRIL [Concomitant]
     Active Substance: HYDROCHLOROTHIAZIDE\LISINOPRIL
     Dosage: UNK
     Dates: start: 20090427
  4. LEXAPRO [Concomitant]
     Active Substance: ESCITALOPRAM OXALATE
     Dosage: UNK
     Dates: start: 20090427
  5. CALTRATE [CALCIUM CARBONATE] [Concomitant]
     Dosage: UNK
     Dates: start: 20090427
  6. LUNESTA [Concomitant]
     Active Substance: ESZOPICLONE
     Dosage: UNK
     Dates: start: 20090427
  7. YAZ [Suspect]
     Active Substance: DROSPIRENONE\ETHINYL ESTRADIOL
  8. VITAMIN C [ASCORBIC ACID] [Concomitant]
     Dosage: UNK
     Dates: start: 20090427
  9. VITAMIN D [Concomitant]
     Active Substance: CHOLECALCIFEROL
  10. MAGNESIUM [MAGNESIUM] [Concomitant]
     Dosage: UNK
     Dates: start: 20090427
  11. IMITREX [Concomitant]
     Active Substance: SUMATRIPTAN\SUMATRIPTAN SUCCINATE
     Dosage: UNK
     Dates: start: 20090427
  12. BYSTOLIC [Concomitant]
     Active Substance: NEBIVOLOL HYDROCHLORIDE
  13. FROVA [Concomitant]
     Active Substance: FROVATRIPTAN SUCCINATE

REACTIONS (6)
  - Myocardial infarction [None]
  - Joint stiffness [None]
  - Emotional distress [None]
  - Chest pain [None]
  - Injury [None]
  - Dyspepsia [None]

NARRATIVE: CASE EVENT DATE: 20090427
